FAERS Safety Report 13406907 (Version 2)
Quarter: 2017Q2

REPORT INFORMATION
  Report Type: Spontaneous
  Country: IT (occurrence: IT)
  Receive Date: 20170405
  Receipt Date: 20170418
  Transmission Date: 20170830
  Serious: Yes (Other)
  Sender: FDA-Public Use
  Company Number: IT-GILEAD-2017-0265419

PATIENT
  Age: 76 Year
  Sex: Male

DRUGS (5)
  1. ANTRA                              /00661201/ [Concomitant]
     Active Substance: OMEPRAZOLE
     Route: 048
  2. SOVALDI [Suspect]
     Active Substance: SOFOSBUVIR
     Indication: CHRONIC HEPATITIS C
     Dosage: 800 MG, QD
     Route: 048
  3. TERAFLUSS [Concomitant]
  4. DAKLINZA [Concomitant]
     Active Substance: DACLATASVIR
     Indication: CHRONIC HEPATITIS C
     Dosage: 60 MG, UNK
     Route: 048
  5. RIBAVIRIN. [Concomitant]
     Active Substance: RIBAVIRIN
     Indication: CHRONIC HEPATITIS C
     Dosage: 800 MG, UNK
     Route: 065

REACTIONS (3)
  - Abdominal pain upper [Unknown]
  - Vomiting [Recovered/Resolved]
  - Medication error [Recovered/Resolved]

NARRATIVE: CASE EVENT DATE: 20170329
